FAERS Safety Report 7784314-3 (Version None)
Quarter: 2011Q3

REPORT INFORMATION
  Report Type: 
  Country: None (occurrence: None)
  Receive Date: 20110928
  Receipt Date: 20110916
  Transmission Date: 20111222
  Serious: Yes (Other)
  Sender: FDA-Public Use
  Company Number: PHHY2011AR83006

PATIENT
  Sex: Male

DRUGS (2)
  1. ONBREZ [Suspect]
     Indication: CHRONIC OBSTRUCTIVE PULMONARY DISEASE
     Dosage: 150 MG, QD
     Dates: start: 20110823
  2. SODIUM BICARBONATE [Concomitant]

REACTIONS (3)
  - BURNING SENSATION [None]
  - TONGUE DISORDER [None]
  - ORAL CANDIDIASIS [None]
